FAERS Safety Report 5153292-8 (Version None)
Quarter: 2006Q4

REPORT INFORMATION
  Report Type: 
  Country: None (occurrence: None)
  Receive Date: 20061117
  Receipt Date: 20061109
  Transmission Date: 20070319
  Serious: Yes (Hospitalization)
  Sender: FDA-Public Use
  Company Number: GR-ROCHE-470898

PATIENT

DRUGS (1)
  1. BONIVA [Suspect]
     Indication: DRUG USE FOR UNKNOWN INDICATION
     Dosage: FORMULATION WAS REPORTED AS F.C. TABLETS (FILM COATED).
     Route: 048

REACTIONS (1)
  - HEPATIC ENZYME DECREASED [None]
